FAERS Safety Report 12896811 (Version 1)
Quarter: 2016Q4

REPORT INFORMATION
  Report Type: Spontaneous
  Country: JP (occurrence: JP)
  Receive Date: 20161031
  Receipt Date: 20161031
  Transmission Date: 20170207
  Serious: Yes (Other)
  Sender: FDA-Public Use
  Company Number: JP-PFIZER INC-2016501779

PATIENT

DRUGS (1)
  1. VFEND [Suspect]
     Active Substance: VORICONAZOLE
     Dosage: UNK UNK, 2X/DAY, 600 MG/DAY (TWICE DAILY, IN THE MORNING AND THE EVENING)
     Route: 048

REACTIONS (1)
  - Tuberculosis [Unknown]
